FAERS Safety Report 23651579 (Version 2)
Quarter: 2025Q1

REPORT INFORMATION
  Report Type: Spontaneous
  Country: US (occurrence: US)
  Receive Date: 20240320
  Receipt Date: 20250227
  Transmission Date: 20250408
  Serious: No
  Sender: LEO PHARM
  Company Number: US-LEO Pharma-368714

PATIENT
  Age: 34 Year
  Sex: Male

DRUGS (1)
  1. ADBRY [Suspect]
     Active Substance: TRALOKINUMAB-LDRM
     Indication: Dermatitis atopic
     Dosage: TREATMENT IS ONGOING
     Route: 058
     Dates: start: 202302

REACTIONS (3)
  - Rash [Unknown]
  - Eye allergy [Unknown]
  - Dermatitis atopic [Unknown]
